FAERS Safety Report 16196652 (Version 1)
Quarter: 2019Q2

REPORT INFORMATION
  Report Type: Spontaneous
  Country: BR (occurrence: BR)
  Receive Date: 20190415
  Receipt Date: 20190415
  Transmission Date: 20190711
  Serious: Yes (Other)
  Sender: FDA-Public Use
  Company Number: BR-ABBVIE-19P-020-2744900-00

PATIENT
  Sex: Female

DRUGS (3)
  1. DEPAKOTE ER [Suspect]
     Active Substance: DIVALPROEX SODIUM
     Indication: PRODUCT USED FOR UNKNOWN INDICATION
     Dosage: DAILY DOSE: UNKNOWN; FORM STRENGTH 250MG; FREQUENCY: MORNING; ONGOING
     Route: 065
  2. DEPAKOTE ER [Suspect]
     Active Substance: DIVALPROEX SODIUM
     Dosage: DAILY DOSE: UNKNOWN; FREQUENCY: MORNING/ AT 17H, AFTER A MEAL; INTERRUPTED DUE TO EVENTS
     Route: 065
     Dates: start: 201807
  3. DEPAKOTE ER [Suspect]
     Active Substance: DIVALPROEX SODIUM
     Dosage: DAILY DOSE: UNKNOWN; FREQUENCY: MORNING; INTERRUPTED WHEN EXPERIENCED A SEIZURE
     Route: 065

REACTIONS (12)
  - Memory impairment [Unknown]
  - Nightmare [Unknown]
  - Irritability [Unknown]
  - Seizure [Unknown]
  - Gastrointestinal sounds abnormal [Unknown]
  - Alopecia [Not Recovered/Not Resolved]
  - Insomnia [Recovered/Resolved]
  - Malaise [Recovered/Resolved]
  - Product use issue [Unknown]
  - Gastrointestinal hypermotility [Unknown]
  - Agitation [Recovered/Resolved]
  - Erythema [Unknown]
